FAERS Safety Report 8188395 (Version 4)
Quarter: 2013Q4

REPORT INFORMATION
  Report Type: Spontaneous
  Country: CL (occurrence: CL)
  Receive Date: 20111006
  Receipt Date: 20131031
  Transmission Date: 20140711
  Serious: Yes (Hospitalization, Other)
  Sender: FDA-Public Use
  Company Number: CL-009507513-2011SP045695

PATIENT
  Age: 34 Year
  Sex: Female
  Weight: 68 kg

DRUGS (6)
  1. IMPLANON [Suspect]
     Indication: CONTRACEPTION
     Dosage: 68 MG, TRIENNIAL
     Route: 059
     Dates: start: 20110208
  2. EUTIROX [Concomitant]
     Indication: THYROIDITIS CHRONIC
     Dosage: 100 MG, UNKNOWN
     Route: 065
     Dates: start: 201103
  3. EUTIROX [Concomitant]
     Indication: HYPOTHYROIDISM
  4. AZULFIDINE [Concomitant]
     Indication: INFLAMMATORY BOWEL DISEASE
     Dosage: UNK, UNKNOWN
     Route: 065
     Dates: start: 201108
  5. AZULFIDINE [Concomitant]
     Indication: COLITIS ULCERATIVE
  6. SALOFALK [Concomitant]
     Indication: INFLAMMATORY BOWEL DISEASE
     Dosage: UNK, UNKNOWN
     Route: 065
     Dates: start: 201108

REACTIONS (11)
  - Abortion missed [Recovered/Resolved]
  - Colitis ulcerative [Unknown]
  - Hypothyroidism [Unknown]
  - Abortion threatened [Unknown]
  - Caesarean section [Unknown]
  - Micturition urgency [Unknown]
  - Pregnancy with implant contraceptive [Recovered/Resolved]
  - Pregnancy with implant contraceptive [Recovered/Resolved]
  - Metrorrhagia [Unknown]
  - Weight increased [Not Recovered/Not Resolved]
  - Amenorrhoea [Unknown]
